FAERS Safety Report 7305922-X (Version None)
Quarter: 2011Q1

REPORT INFORMATION
  Report Type: 
  Country: None (occurrence: None)
  Receive Date: 20110222
  Receipt Date: 20110216
  Transmission Date: 20110831
  Serious: Yes (Hospitalization)
  Sender: FDA-Public Use
  Company Number: FR-PFIZER INC-2010089563

PATIENT
  Age: 47 Year
  Sex: Male

DRUGS (4)
  1. ZYVOX [Suspect]
     Indication: ENTEROCOCCAL SEPSIS
     Dosage: UNK
     Dates: start: 20080101, end: 20080128
  2. TIENAM [Suspect]
     Indication: ENTEROCOCCAL SEPSIS
     Dosage: UNK
     Dates: start: 20080101, end: 20080128
  3. NEBCIN [Suspect]
     Indication: ENTEROCOCCAL SEPSIS
     Dosage: UNK
     Dates: start: 20080101, end: 20080206
  4. TRIFLUCAN [Suspect]
     Indication: ENTEROCOCCAL SEPSIS
     Dosage: UNK
     Dates: start: 20080101, end: 20080117

REACTIONS (1)
  - JAUNDICE CHOLESTATIC [None]
